FAERS Safety Report 4304565-X (Version None)
Quarter: 2004Q1

REPORT INFORMATION
  Report Type: 
  Country: None (occurrence: None)
  Receive Date: 20040224
  Receipt Date: 20040213
  Transmission Date: 20041129
  Serious: Yes (Other)
  Sender: FDA-Public Use
  Company Number: JP-JNJFOC-20040201927

PATIENT
  Age: 68 Year
  Sex: Female

DRUGS (16)
  1. RISPERDAL [Suspect]
     Indication: DELIRIUM
     Dosage: 0.5 MG, IN 1 DAY, ORAL; 1 MG, IN 1 DAY, ORAL
     Route: 048
     Dates: start: 20031117, end: 20031126
  2. RISPERDAL [Suspect]
     Indication: DELIRIUM
     Dosage: 0.5 MG, IN 1 DAY, ORAL; 1 MG, IN 1 DAY, ORAL
     Route: 048
     Dates: start: 20031127, end: 20031214
  3. RISPERDAL [Suspect]
     Indication: DELIRIUM
     Dosage: 0.5 MG, IN 1 DAY, ORAL; 1 MG, IN 1 DAY, ORAL
     Route: 048
     Dates: start: 20031215, end: 20040116
  4. MIANSERIN HYDROCHLORIDE (MIANSERIN HYDROCHLORIDE) UNSPECIFIED [Suspect]
     Indication: DEPRESSION
     Dosage: 10 MG, IN 1 DAY, ORAL; 30 MG, IN 1 DAY, ORAL
     Route: 048
     Dates: start: 20031215, end: 20031217
  5. MIANSERIN HYDROCHLORIDE (MIANSERIN HYDROCHLORIDE) UNSPECIFIED [Suspect]
     Indication: DEPRESSION
     Dosage: 10 MG, IN 1 DAY, ORAL; 30 MG, IN 1 DAY, ORAL
     Route: 048
     Dates: start: 20031218, end: 20040116
  6. NICERGOLINE (NICERGOLINE) UNSPECIFIED [Suspect]
     Indication: CEREBRAL INFARCTION
     Dosage: 15 MG, IN 1 DAY, ORAL
     Route: 048
     Dates: start: 20031117, end: 20040116
  7. ZOPICLONE (ZOPICLONE) UNSPECIFIED [Suspect]
     Indication: INSOMNIA
     Dosage: 10 MG, IN 1 DAY, ORAL
     Route: 048
     Dates: start: 20040105, end: 20040111
  8. LITHIUM CARBONATE [Suspect]
     Indication: DEPRESSION
     Dosage: ORAL
     Route: 048
     Dates: start: 20031209, end: 20040116
  9. ZOLPIDEM TARTRATE (ZOLPIDEM TARTRATE) UNSPECIFIED [Suspect]
     Dosage: 10 MG, IN 1 DAY, ORAL; 5 MG, IN 1 DAY, ORAL
     Route: 048
     Dates: start: 20040105, end: 20040108
  10. ZOLPIDEM TARTRATE (ZOLPIDEM TARTRATE) UNSPECIFIED [Suspect]
     Dosage: 10 MG, IN 1 DAY, ORAL; 5 MG, IN 1 DAY, ORAL
     Route: 048
     Dates: start: 20040106, end: 20040111
  11. PAROXETINE HCL [Concomitant]
  12. NITRAZEPAM (NITRAZEPAM) UNSPECIFIED [Concomitant]
  13. BROTIZOLAM (BROTIZOLAM) UNSPECIFIED [Concomitant]
  14. AMOXAPINE (AMOXAPINE) UNSPECIFIED [Concomitant]
  15. SULPIRIDE (SULPIRIDE) [Concomitant]
  16. ETIZOLAM (ETIZOLAM) [Concomitant]

REACTIONS (12)
  - ANAEMIA [None]
  - DISORIENTATION [None]
  - DRUG INTERACTION [None]
  - ERYTHROPENIA [None]
  - HEPATIC FUNCTION ABNORMAL [None]
  - HEPATIC STEATOSIS [None]
  - HEPATOCELLULAR DAMAGE [None]
  - INSOMNIA [None]
  - LEUKOPENIA [None]
  - LIVER DISORDER [None]
  - NEUTROPENIA [None]
  - PYREXIA [None]
